FAERS Safety Report 18553648 (Version 2)
Quarter: 2021Q1

REPORT INFORMATION
  Report Type: Spontaneous
  Country: JP (occurrence: JP)
  Receive Date: 20201127
  Receipt Date: 20210102
  Transmission Date: 20210419
  Serious: Yes (Other)
  Sender: FDA-Public Use
  Company Number: NVSJ2020JP006309

PATIENT
  Age: 75 Year
  Sex: Male

DRUGS (4)
  1. BEOVU [Suspect]
     Active Substance: BROLUCIZUMAB-DBLL
     Indication: AGE-RELATED MACULAR DEGENERATION
     Dosage: 6 MG
     Route: 031
     Dates: start: 20200609, end: 20200609
  2. EYLEA [Suspect]
     Active Substance: AFLIBERCEPT
     Indication: AGE-RELATED MACULAR DEGENERATION
     Dosage: 3 TIMES
     Route: 031
  3. EYLEA [Suspect]
     Active Substance: AFLIBERCEPT
     Dosage: UNK
     Route: 031
     Dates: start: 20200914, end: 20200914
  4. EYLEA [Suspect]
     Active Substance: AFLIBERCEPT
     Dosage: 3 TIMES
     Route: 031

REACTIONS (8)
  - Uveitis [Unknown]
  - Vitreous opacities [Not Recovered/Not Resolved]
  - Uveitis [Recovered/Resolved]
  - Macular oedema [Unknown]
  - Visual acuity reduced [Unknown]
  - Anterior chamber flare [Recovered/Resolved]
  - Vitreous opacities [Recovered/Resolved]
  - Vitreous floaters [Recovered/Resolved]

NARRATIVE: CASE EVENT DATE: 20200627
